FAERS Safety Report 17111207 (Version 1)
Quarter: 2019Q4

REPORT INFORMATION
  Report Type: Spontaneous
  Country: US (occurrence: US)
  Receive Date: 20191203
  Receipt Date: 20191203
  Transmission Date: 20200122
  Serious: Yes (Hospitalization, Disabling, Other)
  Sender: FDA-Public Use
  Company Number: None

PATIENT
  Age: 67 Year
  Sex: Female
  Weight: 72 kg

DRUGS (1)
  1. VANCOMYCIN [Suspect]
     Active Substance: VANCOMYCIN
     Indication: PNEUMONIA
     Dates: end: 20190504

REACTIONS (6)
  - Anal incontinence [None]
  - Balance disorder [None]
  - Impaired quality of life [None]
  - Deafness [None]
  - Renal disorder [None]
  - Dialysis [None]

NARRATIVE: CASE EVENT DATE: 20190501
